FAERS Safety Report 7206760-9 (Version None)
Quarter: 2011Q1

REPORT INFORMATION
  Report Type: 
  Country: None (occurrence: None)
  Receive Date: 20110103
  Receipt Date: 20101227
  Transmission Date: 20110831
  Serious: Yes (Life-Threatening, Hospitalization)
  Sender: FDA-Public Use
  Company Number: FR-SANOFI-AVENTIS-2010SA077822

PATIENT
  Age: 89 Year
  Sex: Female

DRUGS (6)
  1. CARDENSIEL [Concomitant]
  2. LASILIX RETARD [Interacting]
     Route: 048
     Dates: start: 20100515
  3. METFORMIN HCL [Suspect]
     Indication: TYPE 2 DIABETES MELLITUS
     Route: 048
     Dates: end: 20101111
  4. TRIATEC [Interacting]
     Route: 048
     Dates: start: 20100515
  5. AMAREL [Concomitant]
     Route: 048
  6. PREVISCAN [Concomitant]
     Route: 048

REACTIONS (3)
  - LACTIC ACIDOSIS [None]
  - RENAL FAILURE [None]
  - DRUG INTERACTION [None]
